FAERS Safety Report 4819722-3 (Version None)
Quarter: 2005Q4

REPORT INFORMATION
  Report Type: 
  Country: None (occurrence: None)
  Receive Date: 20051102
  Receipt Date: 20051102
  Transmission Date: 20060501
  Serious: Yes (Life-Threatening, Hospitalization)
  Sender: FDA-Public Use
  Company Number: None

PATIENT
  Age: 58 Year
  Sex: Male
  Weight: 52.1 kg

DRUGS (2)
  1. MELOXICAM 15 MG TAB [Suspect]
     Indication: BACK PAIN
     Dosage: 1 TAB, DAILY, ORAL
     Route: 048
     Dates: start: 20041116, end: 20050812
  2. FERROUS SULFATE TAB [Concomitant]

REACTIONS (3)
  - ANAEMIA [None]
  - GASTROINTESTINAL DISORDER [None]
  - VOMITING [None]
